FAERS Safety Report 18277467 (Version 1)
Quarter: 2020Q3

REPORT INFORMATION
  Report Type: Spontaneous
  Country: JP (occurrence: JP)
  Receive Date: 20200917
  Receipt Date: 20200917
  Transmission Date: 20201103
  Serious: Yes (Hospitalization, Other)
  Sender: FDA-Public Use
  Company Number: JP-009507513-2004JPN001862J

PATIENT
  Age: 78 Year
  Sex: Male

DRUGS (1)
  1. KEYTRUDA [Suspect]
     Active Substance: PEMBROLIZUMAB
     Indication: GINGIVAL CANCER
     Dosage: 200 MILLIGRAM, Q3W
     Route: 041
     Dates: start: 202003

REACTIONS (4)
  - Tumour pseudoprogression [Recovered/Resolved]
  - Decreased immune responsiveness [Recovering/Resolving]
  - Blood glucose increased [Recovering/Resolving]
  - Adrenal insufficiency [Unknown]

NARRATIVE: CASE EVENT DATE: 2020
